FAERS Safety Report 25341868 (Version 2)
Quarter: 2025Q2

REPORT INFORMATION
  Report Type: Spontaneous
  Country: US (occurrence: US)
  Receive Date: 20250521
  Receipt Date: 20250617
  Transmission Date: 20250716
  Serious: Yes (Other)
  Sender: REGENERON
  Company Number: US-REGENERON PHARMACEUTICALS, INC.-2025-082018

PATIENT
  Sex: Female

DRUGS (2)
  1. EYLEA [Suspect]
     Active Substance: AFLIBERCEPT
     Indication: Diabetic retinopathy
     Dosage: 2 MG, EVERY 4 WEEKS, ONE EYE, FORMULATION: UNKNOWN
     Dates: start: 202504
  2. EYLEA [Suspect]
     Active Substance: AFLIBERCEPT
     Dosage: 2 MG, EVERY 4 WEEKS, OTHER EYE (TREATED IN BOTH EYES), FORMULATION: UNKNOWN
     Dates: start: 202504

REACTIONS (2)
  - Eye infection [Unknown]
  - Eye infection [Unknown]

NARRATIVE: CASE EVENT DATE: 20250401
